FAERS Safety Report 23889180 (Version 1)
Quarter: 2024Q2

REPORT INFORMATION
  Report Type: Spontaneous
  Country: IT (occurrence: IT)
  Receive Date: 20240523
  Receipt Date: 20240523
  Transmission Date: 20240716
  Serious: Yes (Other)
  Sender: FDA-Public Use
  Company Number: None

PATIENT
  Age: 65 Year
  Sex: Male

DRUGS (6)
  1. BEVACIZUMAB [Suspect]
     Active Substance: BEVACIZUMAB
     Indication: Age-related macular degeneration
     Dosage: 1 DOSAGE FORM (RIGHT EYE)
     Route: 031
     Dates: start: 20231117, end: 20231117
  2. BEVACIZUMAB [Suspect]
     Active Substance: BEVACIZUMAB
     Dosage: 1 DOSAGE FORM (LEFT EYE)
     Route: 031
     Dates: start: 20231222, end: 20231222
  3. BEVACIZUMAB [Suspect]
     Active Substance: BEVACIZUMAB
     Dosage: 1 DOSAGE FORM (RIGHT EYE)
     Route: 031
     Dates: start: 20240112, end: 20240112
  4. BEVACIZUMAB [Suspect]
     Active Substance: BEVACIZUMAB
     Dosage: 1 DOSAGE FORM (LEFT EYE)
     Route: 031
     Dates: start: 20240125, end: 20240125
  5. BEVACIZUMAB [Suspect]
     Active Substance: BEVACIZUMAB
     Dosage: 1 DOSAGE FORM (RIGHT EYE)
     Route: 031
     Dates: start: 20240215, end: 20240215
  6. BEVACIZUMAB [Suspect]
     Active Substance: BEVACIZUMAB
     Dosage: 1 DOSAGE FORM (LEFT EYE)
     Route: 031
     Dates: start: 20240229, end: 20240229

REACTIONS (3)
  - Age-related macular degeneration [Not Recovered/Not Resolved]
  - Therapy non-responder [Not Recovered/Not Resolved]
  - Off label use [Unknown]

NARRATIVE: CASE EVENT DATE: 20231117
